FAERS Safety Report 17034538 (Version 2)
Quarter: 2019Q4

REPORT INFORMATION
  Report Type: Report from Study
  Country: None (occurrence: CA)
  Receive Date: 20191115
  Receipt Date: 20191220
  Transmission Date: 20200122
  Serious: Yes (Hospitalization, Other)
  Sender: FDA-Public Use
  Company Number: CA-ABBVIE-19K-028-3001147-00

PATIENT
  Sex: Male

DRUGS (1)
  1. LUPRON DEPOT [Suspect]
     Active Substance: LEUPROLIDE ACETATE
     Indication: PROSTATE CANCER
     Route: 030
     Dates: start: 20190524

REACTIONS (4)
  - Post procedural complication [Unknown]
  - Prostatectomy [Unknown]
  - Endocarditis [Unknown]
  - Bacteraemia [Unknown]

NARRATIVE: CASE EVENT DATE: 2019
